FAERS Safety Report 9025303 (Version 1)
Quarter: 2013Q1

REPORT INFORMATION
  Report Type: Spontaneous
  Country: CA (occurrence: CA)
  Receive Date: 20130122
  Receipt Date: 20130122
  Transmission Date: 20140127
  Serious: Yes (Death, Hospitalization)
  Sender: FDA-Public Use
  Company Number: CA-B.I. PHARMACEUTICALS,INC./RIDGEFIELD-2013-CN-00062CN

PATIENT
  Sex: Female

DRUGS (2)
  1. PRADAX [Suspect]
     Indication: CEREBROVASCULAR ACCIDENT PROPHYLAXIS
     Dosage: BID
  2. PRADAX [Suspect]
     Indication: ATRIAL FIBRILLATION

REACTIONS (3)
  - Haemorrhage [Fatal]
  - Hip fracture [Unknown]
  - Fall [Unknown]
